FAERS Safety Report 7710179 (Version 2)
Quarter: 2013Q2

REPORT INFORMATION
  Report Type: Report from Study
  Country: US (occurrence: US)
  Receive Date: 20101214
  Receipt Date: 20130523
  Transmission Date: 20140414
  Serious: Yes (Disabling, Other)
  Sender: FDA-Public Use
  Company Number: US-RB-022004-09

PATIENT
  Age: 42 Year
  Sex: Female

DRUGS (7)
  1. SUBOXONE TABLET [Suspect]
     Dosage: DURING CLINICAL TRIAL IN 1997 - HOW LONG PATIENT WAS IN STUDY WAS UNKNOWN.
     Route: 060
     Dates: start: 1997
  2. SUBOXONE TABLET [Suspect]
     Dosage: 8 MG-AT A DOSE OF TWO OR THREE TIMES DAILY (PATIENT UNSURE)
     Route: 065
     Dates: end: 2010
  3. SUBOXONE TABLET [Suspect]
     Route: 060
     Dates: start: 2009, end: 2009
  4. SUBOXONE TABLET [Suspect]
     Indication: DRUG DEPENDENCE
     Route: 060
     Dates: start: 20130105
  5. SUBOXONE FILM [Suspect]
     Indication: DRUG DEPENDENCE
     Dosage: SUBOXONE FILM
     Route: 060
     Dates: start: 2010, end: 20130104
  6. HEROIN [Suspect]
     Dosage: DOSING INFORMATION UNKNOWN
     Route: 065
  7. MULTI VITAMIN OTC [Concomitant]

REACTIONS (25)
  - Complex partial seizures [Not Recovered/Not Resolved]
  - Overdose [Recovered/Resolved]
  - Hepatic enzyme increased [Recovered/Resolved]
  - Epileptic aura [Not Recovered/Not Resolved]
  - HIV test positive [Not Recovered/Not Resolved]
  - Disability [Not Recovered/Not Resolved]
  - Platelet count decreased [Not Recovered/Not Resolved]
  - Convulsion [Not Recovered/Not Resolved]
  - Hypersomnia [Recovered/Resolved]
  - Drug dependence [Not Recovered/Not Resolved]
  - Drug ineffective [Recovered/Resolved]
  - Wrong technique in drug usage process [Not Recovered/Not Resolved]
  - Drug withdrawal syndrome [Recovered/Resolved]
  - Hyperhidrosis [Recovered/Resolved]
  - Chills [Recovered/Resolved]
  - Sneezing [Recovered/Resolved]
  - Wheezing [Recovered/Resolved]
  - Dyspnoea [Recovered/Resolved]
  - Drug abuse [Recovered/Resolved]
  - Post-traumatic stress disorder [Not Recovered/Not Resolved]
  - Substance abuse [Unknown]
  - Hepatic pain [Recovered/Resolved]
  - Hypoaesthesia [Not Recovered/Not Resolved]
  - Local swelling [Not Recovered/Not Resolved]
  - Rash [Not Recovered/Not Resolved]
